FAERS Safety Report 19605829 (Version 1)
Quarter: 2021Q3

REPORT INFORMATION
  Report Type: Spontaneous
  Country: FR (occurrence: FR)
  Receive Date: 20210723
  Receipt Date: 20210723
  Transmission Date: 20211014
  Serious: Yes (Hospitalization)
  Sender: FDA-Public Use
  Company Number: FR-ELI_LILLY_AND_COMPANY-FR202107006152

PATIENT
  Age: 62 Year
  Sex: Female

DRUGS (3)
  1. PEMETREXED. [Suspect]
     Active Substance: PEMETREXED
     Indication: LUNG ADENOCARCINOMA STAGE IV
     Dosage: UNK, UNKNOWN
     Route: 065
     Dates: start: 20201027, end: 20210525
  2. BEVACIZUMAB. [Suspect]
     Active Substance: BEVACIZUMAB
     Indication: LUNG ADENOCARCINOMA STAGE IV
     Dosage: UNK, UNKNOWN
     Route: 065
     Dates: start: 20201027
  3. CARBOPLATINE [Suspect]
     Active Substance: CARBOPLATIN
     Indication: LUNG ADENOCARCINOMA STAGE IV
     Dosage: UNK UNK, UNKNOWN
     Route: 065
     Dates: start: 20201027, end: 20201229

REACTIONS (3)
  - Pleural effusion [Recovering/Resolving]
  - Pericardial effusion [Recovering/Resolving]
  - Ascites [Unknown]

NARRATIVE: CASE EVENT DATE: 20210308
